FAERS Safety Report 6125330-7 (Version None)
Quarter: 2009Q1

REPORT INFORMATION
  Report Type: 
  Country: None (occurrence: None)
  Receive Date: 20090320
  Receipt Date: 20090316
  Transmission Date: 20090719
  Serious: Yes (Other)
  Sender: FDA-Public Use
  Company Number: AU-JNJFOC-20090304365

PATIENT
  Age: 56 Year
  Sex: Female

DRUGS (3)
  1. RISPERDAL [Suspect]
     Indication: DRUG USE FOR UNKNOWN INDICATION
     Route: 065
  2. LOVAN [Concomitant]
     Route: 065
  3. VALPROATE SODIUM [Concomitant]
     Route: 065

REACTIONS (1)
  - CEREBROVASCULAR DISORDER [None]
